FAERS Safety Report 24897541 (Version 1)
Quarter: 2025Q1

REPORT INFORMATION
  Report Type: Spontaneous
  Country: US (occurrence: US)
  Receive Date: 20250129
  Receipt Date: 20250129
  Transmission Date: 20250408
  Serious: No
  Sender: ROCHE
  Company Number: US-ROCHE-10000191778

PATIENT
  Sex: Male

DRUGS (21)
  1. ERIVEDGE [Suspect]
     Active Substance: VISMODEGIB
     Indication: Basal cell carcinoma
     Route: 065
  2. ACETAMINOPHE [Concomitant]
  3. BISACODYL [Concomitant]
     Active Substance: BISACODYL
  4. CETIRIZINE H [Concomitant]
  5. DICLOFENAC S [Concomitant]
  6. FERROUS FUMA [Concomitant]
  7. HEALTHY EYES CAP [Concomitant]
  8. LUBRICATING SOL [Concomitant]
  9. MAGNESSIUM [Concomitant]
  10. METOPROLOL S [Concomitant]
  11. MILK OF MAGN SUS [Concomitant]
  12. VITAMINS [Concomitant]
     Active Substance: VITAMINS
  13. OSTEO BI-FLE [Concomitant]
  14. PANTOPRAZOLE [Concomitant]
     Active Substance: PANTOPRAZOLE
  15. POTASSIUM CH [Concomitant]
  16. SUCRALFATE [Concomitant]
     Active Substance: SUCRALFATE
  17. TAMSULOSIN [Concomitant]
     Active Substance: TAMSULOSIN
  18. TUMS CHE [Concomitant]
  19. VITAMIN E [Concomitant]
     Active Substance: .ALPHA.-TOCOPHEROL
  20. WARFARIN SODIUM [Concomitant]
     Active Substance: WARFARIN SODIUM
  21. WARFARIN SODIUM [Concomitant]
     Active Substance: WARFARIN SODIUM

REACTIONS (2)
  - Ageusia [Unknown]
  - Muscle spasms [Unknown]
